FAERS Safety Report 4284253-9 (Version None)
Quarter: 2004Q1

REPORT INFORMATION
  Report Type: 
  Country: None (occurrence: None)
  Receive Date: 20040130
  Receipt Date: 20040119
  Transmission Date: 20041129
  Serious: No
  Sender: FDA-Public Use
  Company Number: 04P-083-0247858-00

PATIENT
  Age: 29 Year
  Sex: Female

DRUGS (2)
  1. VALPROATE SODIUM [Suspect]
     Indication: EPILEPSY
     Dosage: 1150 MG, 1 IN 1 D, PER ORAL
     Route: 048
     Dates: start: 19920101, end: 20031001
  2. INTERFERON BETA [Suspect]
     Indication: MULTIPLE SCLEROSIS
     Dosage: 3 DOSAGE FORMS, 1 IN 1 WK, SUBCUTANEOUS
     Route: 058
     Dates: start: 20020101, end: 20031001

REACTIONS (1)
  - GRANULOCYTOPENIA [None]
